FAERS Safety Report 11297375 (Version 1)
Quarter: 2015Q3

REPORT INFORMATION
  Report Type: Spontaneous
  Country: US (occurrence: US)
  Receive Date: 20150722
  Receipt Date: 20150722
  Transmission Date: 20151125
  Serious: No
  Sender: FDA-Public Use
  Company Number: US-ELI_LILLY_AND_COMPANY-US200805000839

PATIENT
  Age: 58 Year
  Sex: Female

DRUGS (2)
  1. HUMATROPE [Suspect]
     Active Substance: SOMATROPIN
     Dosage: UNK, UNKNOWN
     Dates: start: 2008
  2. CALCIUM [Concomitant]
     Active Substance: CALCIUM
     Indication: HYPERCALCAEMIA
     Dosage: UNK, UNKNOWN
     Dates: start: 2008

REACTIONS (2)
  - Skin lesion [Recovering/Resolving]
  - Bone graft [Recovering/Resolving]

NARRATIVE: CASE EVENT DATE: 200711
